FAERS Safety Report 13134562 (Version 1)
Quarter: 2017Q1

REPORT INFORMATION
  Report Type: Spontaneous
  Country: US (occurrence: US)
  Receive Date: 20170120
  Receipt Date: 20170120
  Transmission Date: 20170428
  Serious: No
  Sender: FDA-Public Use
  Company Number: US-LEHIGH_VALLEY-USA-POI0580201700078

PATIENT
  Age: 91 Year
  Sex: Male

DRUGS (4)
  1. COQ10 [Concomitant]
     Active Substance: UBIDECARENONE
  2. MULTIVITAMIN [Concomitant]
     Active Substance: VITAMINS
  3. POTASSIUM CHLORIDE ORAL SOLUTION [Suspect]
     Active Substance: POTASSIUM CHLORIDE
     Dosage: 15 ML MIXED WITH 120 ML OF COLD WATER
     Dates: start: 20161219, end: 20161219
  4. POTASSIUM CHLORIDE ORAL SOLUTION [Suspect]
     Active Substance: POTASSIUM CHLORIDE
     Indication: ELECTROLYTE SUBSTITUTION THERAPY
     Dosage: 15 ML MIXED WITH 120 ML OF COLD WATER
     Dates: start: 20161216, end: 20161216

REACTIONS (1)
  - Diarrhoea [Recovered/Resolved]

NARRATIVE: CASE EVENT DATE: 20161216
